FAERS Safety Report 22361438 (Version 1)
Quarter: 2023Q2

REPORT INFORMATION
  Report Type: Spontaneous
  Country: US (occurrence: US)
  Receive Date: 20230524
  Receipt Date: 20230524
  Transmission Date: 20230722
  Serious: Yes (Hospitalization)
  Sender: FDA-Public Use
  Company Number: US-SAMSUNG BIOEPIS-SB-2023-13601

PATIENT
  Age: 8 Year
  Sex: Male

DRUGS (2)
  1. INFLIXIMAB [Suspect]
     Active Substance: INFLIXIMAB
     Indication: B-cell lymphoma
     Dosage: UNKNOWN
     Route: 065
  2. METRONIDAZOLE [Concomitant]
     Active Substance: METRONIDAZOLE
     Indication: B-cell lymphoma
     Dosage: UNKNOWN
     Route: 065

REACTIONS (3)
  - B-cell lymphoma recurrent [Unknown]
  - Drug ineffective for unapproved indication [Unknown]
  - Off label use [Unknown]
